FAERS Safety Report 9021737 (Version 1)
Quarter: 2013Q1

REPORT INFORMATION
  Report Type: Spontaneous
  Country: US (occurrence: US)
  Receive Date: 20130119
  Receipt Date: 20130119
  Transmission Date: 20140127
  Serious: No
  Sender: FDA-Public Use
  Company Number: US-ALLERGAN-1205902US

PATIENT
  Age: 42 Year
  Sex: Female

DRUGS (3)
  1. BOTOX COSMETIC [Suspect]
     Indication: SKIN WRINKLING
     Dosage: UNK
     Route: 030
     Dates: start: 201111, end: 201111
  2. BOTOX COSMETIC [Suspect]
     Dosage: UNK
     Route: 030
     Dates: start: 2010, end: 2010
  3. BOTOX COSMETIC [Suspect]
     Dosage: UNK
     Route: 030

REACTIONS (8)
  - Acne [Not Recovered/Not Resolved]
  - Seborrhoea [Not Recovered/Not Resolved]
  - Erythema [Recovering/Resolving]
  - Swelling face [Not Recovered/Not Resolved]
  - Injection site rash [Not Recovered/Not Resolved]
  - Injection site erythema [Recovering/Resolving]
  - Injection site swelling [Not Recovered/Not Resolved]
  - Erythema multiforme [Not Recovered/Not Resolved]
